FAERS Safety Report 10178216 (Version 1)
Quarter: 2014Q2

REPORT INFORMATION
  Report Type: Spontaneous
  Country: US (occurrence: US)
  Receive Date: 20140519
  Receipt Date: 20140519
  Transmission Date: 20141212
  Serious: No
  Sender: FDA-Public Use
  Company Number: US-009507513-1405USA005902

PATIENT
  Age: 40 Year
  Sex: 0

DRUGS (3)
  1. PEGINTRON [Suspect]
     Indication: HEPATITIS C
     Dosage: 0.5 ML, QW, STRENGTH: 150 (UNIT NOT PROVIDED), REDIPEN
     Route: 058
     Dates: start: 201405
  2. RIBAVIRIN (WARRICK) [Suspect]
     Dosage: 600 MG, BID
     Route: 048
  3. SOVALDI [Suspect]

REACTIONS (2)
  - Influenza like illness [Not Recovered/Not Resolved]
  - Pain [Not Recovered/Not Resolved]
